FAERS Safety Report 8738641 (Version 2)
Quarter: 2012Q4

REPORT INFORMATION
  Report Type: 
  Country: US (occurrence: US)
  Receive Date: 20120823
  Receipt Date: 20120917
  Transmission Date: 20130627
  Serious: Yes (Hospitalization)
  Sender: FDA-Public Use
  Company Number: US-AMGEN-USASP2012052550

PATIENT
  Age: 52 Year
  Sex: Male
  Weight: 145.13 kg

DRUGS (16)
  1. ENBREL [Suspect]
     Indication: RHEUMATOID ARTHRITIS
     Dosage: 50 mg, qwk
     Route: 058
     Dates: start: 20120320
  2. CALCIUM CARBONATE AND VITAMIN D [Concomitant]
     Dosage: 800 mg, qd
  3. LOVENOX [Concomitant]
     Dosage: 150 mg, bid
     Route: 058
  4. NEURONTIN [Concomitant]
     Dosage: 500 mg, qd
  5. NEURONTIN [Concomitant]
     Dosage: 2 DF, tid
  6. DILAUDID [Concomitant]
     Dosage: 2 mg, tid
  7. VISTARIL /00058402/ [Concomitant]
     Dosage: 50 mg, qid
  8. ADVIL MIGRAINE [Concomitant]
     Dosage: 600 mg, bid
  9. LORATADINE [Concomitant]
     Dosage: 10 mg, qd
  10. REMERON [Concomitant]
     Dosage: 45 mg, qhs
  11. SIMILASAN [Concomitant]
  12. FISH OIL [Concomitant]
     Dosage: UNK UNK, qd
  13. PERCOCET                           /00446701/ [Concomitant]
     Dosage: 5-325 MG
  14. ANDROGEL [Concomitant]
     Dosage: Apply 4 pumps topically daily.
  15. TIZANIDINE                         /00740702/ [Concomitant]
     Dosage: Up to twice a day.
  16. WARFARIN SODIUM [Concomitant]

REACTIONS (5)
  - Pulmonary embolism [Not Recovered/Not Resolved]
  - Pain in extremity [Recovered/Resolved]
  - Musculoskeletal discomfort [Recovered/Resolved]
  - Dizziness [Unknown]
  - Oedema peripheral [Unknown]
